FAERS Safety Report 24728601 (Version 1)
Quarter: 2024Q4

REPORT INFORMATION
  Report Type: Spontaneous
  Country: US (occurrence: None)
  Receive Date: 20241211
  Receipt Date: 20241211
  Transmission Date: 20250114
  Serious: Yes (Other)
  Sender: Public
  Company Number: None

PATIENT
  Age: 75 Year
  Sex: Female
  Weight: 108 kg

DRUGS (1)
  1. REZDIFFRA [Suspect]
     Active Substance: RESMETIROM
     Indication: Metabolic dysfunction-associated steatohepatitis
     Dosage: FREQUENCY : DAILY;?
     Route: 048
     Dates: start: 20240826, end: 20241209

REACTIONS (7)
  - Headache [None]
  - Nausea [None]
  - Constipation [None]
  - Loss of personal independence in daily activities [None]
  - Drug ineffective [None]
  - Therapy interrupted [None]
  - Tremor [None]

NARRATIVE: CASE EVENT DATE: 20241209
